FAERS Safety Report 21982571 (Version 2)
Quarter: 2023Q1

REPORT INFORMATION
  Report Type: Spontaneous
  Country: JP (occurrence: JP)
  Receive Date: 20230213
  Receipt Date: 20230315
  Transmission Date: 20230418
  Serious: No
  Sender: FDA-Public Use
  Company Number: JP-NAPPMUNDI-GBR-2023-0104860

PATIENT
  Age: 47 Year
  Sex: Male

DRUGS (1)
  1. PRALATREXATE [Suspect]
     Active Substance: PRALATREXATE
     Indication: Peripheral T-cell lymphoma unspecified
     Dosage: 30 MG/M2 EVERY OTHER WEEK
     Route: 042

REACTIONS (3)
  - Neutrophil count decreased [Unknown]
  - Platelet count decreased [Unknown]
  - Stomatitis [Unknown]
